FAERS Safety Report 7051367-X (Version None)
Quarter: 2010Q4

REPORT INFORMATION
  Report Type: 
  Country: None (occurrence: None)
  Receive Date: 20101013
  Receipt Date: 20100929
  Transmission Date: 20110411
  Serious: Yes (Hospitalization)
  Sender: FDA-Public Use
  Company Number: 2010AM002998

PATIENT
  Age: 70 Year
  Sex: Female
  Weight: 125.6464 kg

DRUGS (4)
  1. SYMLIN [Suspect]
     Indication: TYPE 2 DIABETES MELLITUS
     Dosage: 150 MCG; TID; SC, 30 MCG; TID; SC
     Route: 058
     Dates: start: 20050101, end: 20050101
  2. SYMLIN [Suspect]
     Indication: TYPE 2 DIABETES MELLITUS
     Dosage: 150 MCG; TID; SC, 30 MCG; TID; SC
     Route: 058
     Dates: start: 20050101
  3. NOVOLIN R [Concomitant]
  4. LANTUS [Concomitant]

REACTIONS (8)
  - ARTHRALGIA [None]
  - CONFUSIONAL STATE [None]
  - FALL [None]
  - GAIT DISTURBANCE [None]
  - HYPOGLYCAEMIA [None]
  - INAPPROPRIATE SCHEDULE OF DRUG ADMINISTRATION [None]
  - MALAISE [None]
  - WEIGHT INCREASED [None]
